FAERS Safety Report 6037701-8 (Version None)
Quarter: 2009Q1

REPORT INFORMATION
  Report Type: 
  Country: None (occurrence: None)
  Receive Date: 20090114
  Receipt Date: 20090102
  Transmission Date: 20090719
  Serious: Yes (Other)
  Sender: FDA-Public Use
  Company Number: GB-PFIZER INC-2009150366

PATIENT

DRUGS (6)
  1. BLINDED *PLACEBO [Suspect]
     Indication: COLORECTAL CANCER
     Dosage: 37.5 MG, 1X/DAY
     Route: 048
     Dates: start: 20081127, end: 20081224
  2. BLINDED SUNITINIB MALATE [Suspect]
     Indication: COLORECTAL CANCER
     Dosage: 37.5 MG, 1X/DAY
     Route: 048
     Dates: start: 20081127, end: 20081224
  3. IRINOTECAN HCL [Suspect]
     Indication: COLORECTAL CANCER
     Dosage: 230 MG, EVERY 2 WEEKS
     Route: 042
     Dates: start: 20081224, end: 20081224
  4. FLUOROURACIL [Suspect]
     Dosage: 521.6 MG, EVERY 2 WEEKS
     Dates: start: 20081224, end: 20081226
  5. FLUOROURACIL [Suspect]
     Dosage: 3215 MG, EVERY 2 WEEKS
     Dates: start: 20081224, end: 20081226
  6. CALCIUM FOLINATE [Suspect]
     Indication: COLORECTAL CANCER
     Dosage: 650 MG, EVERY 2 WEEKS
     Dates: start: 20081224, end: 20081224

REACTIONS (1)
  - AMNESIA [None]
